FAERS Safety Report 5397078-8 (Version None)
Quarter: 2007Q3

REPORT INFORMATION
  Report Type: 
  Country: None (occurrence: None)
  Receive Date: 20070725
  Receipt Date: 20070716
  Transmission Date: 20080115
  Serious: Yes (Life-Threatening, Hospitalization, Disabling)
  Sender: FDA-Public Use
  Company Number: GB-PFIZER INC-2007058560

PATIENT
  Age: 43 Year
  Sex: Female

DRUGS (4)
  1. ALPRAZOLAM [Suspect]
  2. DEPAKOTE [Suspect]
     Route: 048
  3. AZATHIOPRINE [Concomitant]
  4. MIRTAZAPINE [Concomitant]

REACTIONS (3)
  - COMA [None]
  - INTENTIONAL OVERDOSE [None]
  - RESPIRATORY DISORDER [None]
